FAERS Safety Report 5443255-7 (Version None)
Quarter: 2007Q3

REPORT INFORMATION
  Report Type: 
  Country: None (occurrence: None)
  Receive Date: 20070830
  Receipt Date: 20070813
  Transmission Date: 20080115
  Serious: Yes (Hospitalization)
  Sender: FDA-Public Use
  Company Number: ENTC2007-0247

PATIENT
  Age: 86 Year
  Sex: Female

DRUGS (2)
  1. STALEVO (LEVODOPA, CARBIDOPA, ENTECAPONE) [Suspect]
  2. ASPIRIN [Suspect]
     Dosage: 81 MG

REACTIONS (2)
  - ANALGESIC DRUG LEVEL INCREASED [None]
  - DRUG INTERACTION [None]
